FAERS Safety Report 5358770-4 (Version None)
Quarter: 2007Q2

REPORT INFORMATION
  Report Type: 
  Country: None (occurrence: None)
  Receive Date: 20070615
  Receipt Date: 20070606
  Transmission Date: 20071010
  Serious: Yes (Hospitalization)
  Sender: FDA-Public Use
  Company Number: DE-AMGEN-US209341

PATIENT
  Sex: Female
  Weight: 63 kg

DRUGS (2)
  1. ENBREL [Suspect]
     Indication: RHEUMATOID ARTHRITIS
     Dosage: UNKNOWN
     Route: 058
     Dates: start: 20061201, end: 20070201
  2. ENBREL [Suspect]
     Dosage: LYOPHILIZED/UNKNOWN
     Route: 058
     Dates: start: 19990101, end: 20061201

REACTIONS (6)
  - DRUG EFFECT DECREASED [None]
  - IMPAIRED HEALING [None]
  - INJECTION SITE PAIN [None]
  - SPINAL FUSION SURGERY [None]
  - TRANSIENT ISCHAEMIC ATTACK [None]
  - WOUND INFECTION STAPHYLOCOCCAL [None]
